FAERS Safety Report 25523915 (Version 1)
Quarter: 2025Q3

REPORT INFORMATION
  Report Type: Spontaneous
  Country: EU (occurrence: EU)
  Receive Date: 20250707
  Receipt Date: 20250707
  Transmission Date: 20251021
  Serious: Yes (Hospitalization, Other)
  Sender: MYLAN
  Company Number: EU-MYLANLABS-2025M1056390

PATIENT
  Age: 23 Year
  Sex: Male

DRUGS (24)
  1. MYCOPHENOLATE MOFETIL [Suspect]
     Active Substance: MYCOPHENOLATE MOFETIL
     Indication: Prophylaxis against graft versus host disease
     Dosage: 50 MILLIGRAM/KILOGRAM, QD
  2. MYCOPHENOLATE MOFETIL [Suspect]
     Active Substance: MYCOPHENOLATE MOFETIL
     Dosage: 50 MILLIGRAM/KILOGRAM, QD
     Route: 065
  3. MYCOPHENOLATE MOFETIL [Suspect]
     Active Substance: MYCOPHENOLATE MOFETIL
     Dosage: 50 MILLIGRAM/KILOGRAM, QD
     Route: 065
  4. MYCOPHENOLATE MOFETIL [Suspect]
     Active Substance: MYCOPHENOLATE MOFETIL
     Dosage: 50 MILLIGRAM/KILOGRAM, QD
  5. PREDNISONE [Suspect]
     Active Substance: PREDNISONE
     Indication: Prophylaxis against graft versus host disease
     Dosage: 1 MILLIGRAM/KILOGRAM, QD
  6. PREDNISONE [Suspect]
     Active Substance: PREDNISONE
     Dosage: 1 MILLIGRAM/KILOGRAM, QD
     Route: 065
  7. PREDNISONE [Suspect]
     Active Substance: PREDNISONE
     Dosage: 1 MILLIGRAM/KILOGRAM, QD
     Route: 065
  8. PREDNISONE [Suspect]
     Active Substance: PREDNISONE
     Dosage: 1 MILLIGRAM/KILOGRAM, QD
  9. FLUDARABINE [Suspect]
     Active Substance: FLUDARABINE PHOSPHATE
     Indication: Allogenic stem cell transplantation
  10. FLUDARABINE [Suspect]
     Active Substance: FLUDARABINE PHOSPHATE
     Indication: Surgical preconditioning
     Route: 065
  11. FLUDARABINE [Suspect]
     Active Substance: FLUDARABINE PHOSPHATE
     Route: 065
  12. FLUDARABINE [Suspect]
     Active Substance: FLUDARABINE PHOSPHATE
  13. BUSULFAN [Suspect]
     Active Substance: BUSULFAN
     Indication: Allogenic stem cell transplantation
     Route: 065
  14. BUSULFAN [Suspect]
     Active Substance: BUSULFAN
     Indication: Surgical preconditioning
  15. BUSULFAN [Suspect]
     Active Substance: BUSULFAN
  16. BUSULFAN [Suspect]
     Active Substance: BUSULFAN
     Route: 065
  17. BUSULFAN [Suspect]
     Active Substance: BUSULFAN
     Route: 065
  18. BUSULFAN [Suspect]
     Active Substance: BUSULFAN
  19. BUSULFAN [Suspect]
     Active Substance: BUSULFAN
  20. BUSULFAN [Suspect]
     Active Substance: BUSULFAN
     Route: 065
  21. CYCLOSPORINE [Suspect]
     Active Substance: CYCLOSPORINE
     Indication: Prophylaxis against graft versus host disease
     Dosage: QD, 200?250 MG/L/DAY
  22. CYCLOSPORINE [Suspect]
     Active Substance: CYCLOSPORINE
     Dosage: QD, 200?250 MG/L/DAY
     Route: 065
  23. CYCLOSPORINE [Suspect]
     Active Substance: CYCLOSPORINE
     Dosage: QD, 200?250 MG/L/DAY
     Route: 065
  24. CYCLOSPORINE [Suspect]
     Active Substance: CYCLOSPORINE
     Dosage: QD, 200?250 MG/L/DAY

REACTIONS (9)
  - Viral infection [Unknown]
  - Pancytopenia [Unknown]
  - Chronic inflammatory demyelinating polyradiculoneuropathy [Unknown]
  - Diabetes mellitus inadequate control [Unknown]
  - Guillain-Barre syndrome [Unknown]
  - Acute graft versus host disease [Unknown]
  - Condition aggravated [Unknown]
  - Demyelinating polyneuropathy [Unknown]
  - Drug ineffective [Unknown]
